FAERS Safety Report 7442104-5 (Version None)
Quarter: 2011Q2

REPORT INFORMATION
  Report Type: 
  Country: None (occurrence: None)
  Receive Date: 20110419
  Receipt Date: 20110405
  Transmission Date: 20111010
  Serious: Yes (Hospitalization)
  Sender: FDA-Public Use
  Company Number: WAES 0904USA03870

PATIENT
  Age: 38 Year
  Sex: Female
  Weight: 87.5442 kg

DRUGS (14)
  1. ENALAPRIL MALEATE [Concomitant]
  2. VITAMINS [Concomitant]
  3. PREZISTA [Concomitant]
  4. PREDNISONE [Concomitant]
  5. INSULIN [Concomitant]
  6. NORVIR [Concomitant]
  7. COMBIVIR [Suspect]
     Indication: HIV INFECTION
     Dosage: 150.3 MG/BID/PO
     Route: 048
     Dates: start: 20090226, end: 20090714
  8. COREG [Concomitant]
  9. ASPIRIN [Concomitant]
  10. FERROUS SULFATE TAB [Concomitant]
  11. ISENTRESS [Suspect]
     Indication: HIV INFECTION
     Dosage: 400 MG/BID/PO, 400 MG/BID/PO, 400 MG/BID/PO, 400 MG/BID/PO
     Route: 048
     Dates: start: 20090228, end: 20090713
  12. ISENTRESS [Suspect]
     Indication: HIV INFECTION
     Dosage: 400 MG/BID/PO, 400 MG/BID/PO, 400 MG/BID/PO, 400 MG/BID/PO
     Route: 048
     Dates: start: 20090226, end: 20090226
  13. ISENTRESS [Suspect]
     Indication: HIV INFECTION
     Dosage: 400 MG/BID/PO, 400 MG/BID/PO, 400 MG/BID/PO, 400 MG/BID/PO
     Route: 048
     Dates: start: 20090724
  14. BACTRIM [Concomitant]

REACTIONS (5)
  - STRESS FRACTURE [None]
  - HAEMOLYTIC ANAEMIA [None]
  - ANAEMIA MACROCYTIC [None]
  - JOINT EFFUSION [None]
  - CHOLELITHIASIS [None]
